FAERS Safety Report 16192294 (Version 2)
Quarter: 2019Q2

REPORT INFORMATION
  Report Type: Report from Study
  Country: US (occurrence: US)
  Receive Date: 20190412
  Receipt Date: 20190505
  Transmission Date: 20190711
  Serious: Yes (Other)
  Sender: FDA-Public Use
  Company Number: PHEH2019US015865

PATIENT
  Age: 56 Year
  Sex: Female
  Weight: 65.8 kg

DRUGS (7)
  1. GILENYA [Suspect]
     Active Substance: FINGOLIMOD HYDROCHLORIDE
     Indication: MULTIPLE SCLEROSIS
     Dosage: 0.5 MG, QD
     Route: 048
     Dates: start: 20180207
  2. XANAX [Interacting]
     Active Substance: ALPRAZOLAM
     Indication: ANXIETY
     Dosage: 0.5 MG, BID
     Route: 048
  3. SANCTURA [Concomitant]
     Active Substance: TROSPIUM CHLORIDE
     Indication: PRODUCT USED FOR UNKNOWN INDICATION
     Dosage: 20 MG, QD
     Route: 048
  4. NORFLEX [Interacting]
     Active Substance: ORPHENADRINE CITRATE
     Indication: NECK PAIN
     Dosage: 100 MG, BID
     Route: 048
     Dates: start: 20190408, end: 20190411
  5. SOLU-MEDROL [Suspect]
     Active Substance: METHYLPREDNISOLONE SODIUM SUCCINATE
     Indication: MULTIPLE SCLEROSIS RELAPSE
     Route: 065
  6. ASPIRIN. [Concomitant]
     Active Substance: ASPIRIN
     Indication: PRODUCT USED FOR UNKNOWN INDICATION
     Dosage: 324 MG, UNK
     Route: 048
     Dates: start: 20190411
  7. NORFLEX [Interacting]
     Active Substance: ORPHENADRINE CITRATE
     Indication: MUSCLE SPASTICITY

REACTIONS (15)
  - Anxiety [Unknown]
  - Dyspnoea [Unknown]
  - Palpitations [Unknown]
  - Blood pressure increased [Unknown]
  - Drug interaction [Unknown]
  - Lymphocyte count decreased [Unknown]
  - Neck pain [Unknown]
  - Urticaria [Unknown]
  - Muscle spasticity [Unknown]
  - Heart rate increased [Unknown]
  - Paraesthesia [Unknown]
  - Multiple sclerosis relapse [Recovering/Resolving]
  - Muscle spasms [Unknown]
  - Tachycardia [Unknown]
  - Pain [Not Recovered/Not Resolved]

NARRATIVE: CASE EVENT DATE: 20190330
